FAERS Safety Report 4280721-4 (Version None)
Quarter: 2004Q1

REPORT INFORMATION
  Report Type: 
  Country: None (occurrence: None)
  Receive Date: 20040129
  Receipt Date: 20031024
  Transmission Date: 20041129
  Serious: No
  Sender: FDA-Public Use
  Company Number: US-BRISTOL-MYERS SQUIBB COMPANY-12418653

PATIENT
  Age: 59 Year
  Sex: Female
  Weight: 151 kg

DRUGS (6)
  1. METAGLIP [Suspect]
     Indication: DIABETES MELLITUS
     Route: 048
     Dates: start: 20031022
  2. HUMALOG [Concomitant]
  3. LESCOL [Concomitant]
  4. LISINOPRIL [Concomitant]
  5. LANTUS [Concomitant]
  6. AVAPRO [Concomitant]

REACTIONS (2)
  - DIARRHOEA [None]
  - NAUSEA [None]
